FAERS Safety Report 4376019-6 (Version None)
Quarter: 2004Q2

REPORT INFORMATION
  Report Type: 
  Country: None (occurrence: None)
  Receive Date: 20040607
  Receipt Date: 20040527
  Transmission Date: 20050107
  Serious: Yes (Life-Threatening, Hospitalization, Other)
  Sender: FDA-Public Use
  Company Number: 2004215970DE

PATIENT
  Age: 11 Year
  Sex: Female

DRUGS (2)
  1. GENOTROPIN [Suspect]
     Indication: HYPOPITUITARISM
     Dosage: 0.8 MG, QD
     Dates: start: 19981113, end: 20040115
  2. LEUPROLIDE ACETATE [Concomitant]

REACTIONS (2)
  - NEUROBLASTOMA [None]
  - RECURRENT CANCER [None]
